FAERS Safety Report 7927836-4 (Version None)
Quarter: 2011Q4

REPORT INFORMATION
  Report Type: 
  Country: None (occurrence: None)
  Receive Date: 20111118
  Receipt Date: 20111118
  Transmission Date: 20120403
  Serious: Yes (Hospitalization)
  Sender: FDA-Public Use
  Company Number: None

PATIENT
  Age: 38 Year
  Sex: Female
  Weight: 65 kg

DRUGS (1)
  1. COSYNTROPIN [Suspect]
     Indication: BLOOD CORTISOL
     Dosage: 250MCG
     Route: 042
     Dates: start: 20111011, end: 20111011

REACTIONS (1)
  - ANAPHYLACTIC REACTION [None]
